FAERS Safety Report 9709653 (Version 1)
Quarter: 2013Q4

REPORT INFORMATION
  Report Type: Spontaneous
  Country: IN (occurrence: IN)
  Receive Date: 20131126
  Receipt Date: 20131126
  Transmission Date: 20140711
  Serious: Yes (Hospitalization)
  Sender: FDA-Public Use
  Company Number: PHHY2013IN134373

PATIENT
  Age: 68 Year
  Sex: Male

DRUGS (2)
  1. ZOMETA [Suspect]
     Indication: PROSTATE CANCER
     Dosage: 4 MG, EVERY 4 WEEK
     Route: 041
     Dates: start: 2012
  2. GEMCAL [Suspect]
     Indication: PROSTATE CANCER
     Dosage: 500 MG, OD
     Route: 048
     Dates: start: 2012

REACTIONS (4)
  - Retinal detachment [Recovered/Resolved]
  - Vision blurred [Recovered/Resolved]
  - Cataract [Recovered/Resolved]
  - Blood creatinine increased [Unknown]
